FAERS Safety Report 13563533 (Version 6)
Quarter: 2017Q3

REPORT INFORMATION
  Report Type: Spontaneous
  Country: US (occurrence: US)
  Receive Date: 20170519
  Receipt Date: 20170912
  Transmission Date: 20171127
  Serious: No
  Sender: FDA-Public Use
  Company Number: US-PFIZER INC-2017218196

PATIENT
  Age: 60 Year
  Sex: Female

DRUGS (3)
  1. KERYDIN [Suspect]
     Active Substance: TAVABOROLE
     Indication: ONYCHOMYCOSIS
     Dosage: UNK, DAILY (A LITTLE OVER A YEAR)
     Route: 061
  2. KERYDIN [Suspect]
     Active Substance: TAVABOROLE
     Indication: FUNGAL INFECTION
     Dosage: UNK (APPLY THIN LAYER TO NAILS NIGHTLY)
     Route: 061
     Dates: start: 20160301
  3. KERYDIN [Suspect]
     Active Substance: TAVABOROLE
     Dosage: 10 MG, 1X/DAY
     Route: 061
     Dates: start: 201605, end: 20170518

REACTIONS (6)
  - Erythema [Recovered/Resolved]
  - Pruritus [Recovered/Resolved]
  - Pain of skin [Not Recovered/Not Resolved]
  - Dry skin [Not Recovered/Not Resolved]
  - Blister [Recovered/Resolved with Sequelae]
  - Skin exfoliation [Recovered/Resolved]

NARRATIVE: CASE EVENT DATE: 20170417
